FAERS Safety Report 24944909 (Version 1)
Quarter: 2025Q1

REPORT INFORMATION
  Report Type: Spontaneous
  Country: BE (occurrence: BE)
  Receive Date: 20250208
  Receipt Date: 20250208
  Transmission Date: 20250409
  Serious: Yes (Death, Other)
  Sender: AMGEN
  Company Number: BE-AMGEN-BELSP2025020498

PATIENT
  Age: 67 Year
  Sex: Female

DRUGS (9)
  1. BEVACIZUMAB [Suspect]
     Active Substance: BEVACIZUMAB
     Indication: Ovarian cancer
     Dosage: 10 MILLIGRAM/KILOGRAM, Q2WK
     Route: 065
     Dates: start: 202402
  2. FILGRASTIM [Suspect]
     Active Substance: FILGRASTIM
     Indication: Ovarian epithelial cancer
     Dosage: UNK UNK, Q3WK (6 CYCLES)
     Route: 065
     Dates: start: 2012
  3. DOXORUBICIN [Concomitant]
     Active Substance: DOXORUBICIN
     Indication: Product used for unknown indication
     Dosage: 50 MILLIGRAM/SQ. METER, Q4WK
     Route: 065
  4. DOXORUBICIN [Concomitant]
     Active Substance: DOXORUBICIN
     Dosage: 30 MILLIGRAM/SQ. METER, Q4WK
     Route: 065
  5. CARBOPLATIN [Concomitant]
     Active Substance: CARBOPLATIN
     Indication: Ovarian epithelial cancer
     Dates: start: 2012
  6. CARBOPLATIN [Concomitant]
     Active Substance: CARBOPLATIN
     Dates: start: 202203, end: 202309
  7. PACLITAXEL [Concomitant]
     Active Substance: PACLITAXEL
     Dates: start: 2012
  8. PACLITAXEL [Concomitant]
     Active Substance: PACLITAXEL
     Dates: start: 2014
  9. OLAPARIB [Concomitant]
     Active Substance: OLAPARIB
     Dates: start: 201504, end: 202305

REACTIONS (7)
  - Death [Fatal]
  - Ovarian cancer metastatic [Unknown]
  - Disseminated intravascular coagulation [Unknown]
  - Myeloid leukaemia [Unknown]
  - Myelodysplastic syndrome transformation [Unknown]
  - Transformation to acute myeloid leukaemia [Unknown]
  - Ovarian cancer recurrent [Unknown]

NARRATIVE: CASE EVENT DATE: 20130101
